FAERS Safety Report 24244801 (Version 1)
Quarter: 2024Q3

REPORT INFORMATION
  Report Type: Report from Study
  Country: CA (occurrence: CA)
  Receive Date: 20240823
  Receipt Date: 20240823
  Transmission Date: 20241016
  Serious: Yes (Hospitalization)
  Sender: DAIICHI
  Company Number: CA-AstraZeneca-2023A152882

PATIENT
  Sex: Female

DRUGS (1)
  1. ENHERTU [Suspect]
     Active Substance: FAM-TRASTUZUMAB DERUXTECAN-NXKI
     Indication: HER2 positive breast cancer
     Dosage: 4.4 MG/KG, ONCE EVERY 3 WK
     Route: 042
     Dates: start: 20220921

REACTIONS (3)
  - Pleural effusion [Unknown]
  - Tachycardia [Unknown]
  - Dyspnoea [Unknown]

NARRATIVE: CASE EVENT DATE: 20230101
